FAERS Safety Report 5211415-6 (Version None)
Quarter: 2006Q4

REPORT INFORMATION
  Report Type: 
  Country: None (occurrence: None)
  Receive Date: 20061115
  Receipt Date: 20060710
  Transmission Date: 20070319
  Serious: No
  Sender: FDA-Public Use
  Company Number: 200614571BWH

PATIENT
  Age: 44 Year
  Sex: Female

DRUGS (6)
  1. NEXAVAR [Suspect]
     Indication: ASTROCYTOMA
     Dosage: 400 MG, BID, ORAL
     Route: 048
  2. SEIZURE MEDICATION (NOS) [Concomitant]
  3. STEROIDS (NOS) [Concomitant]
  4. ANTIBIOTIC (NOS) [Concomitant]
  5. SLEEP AID [Concomitant]
  6. SENNA PLUS [DOCUSATE SODIUM, SENNOSIDE A+B] [Concomitant]

REACTIONS (1)
  - DYSPHAGIA [None]
